FAERS Safety Report 13082658 (Version 2)
Quarter: 2017Q1

REPORT INFORMATION
  Report Type: Spontaneous
  Country: US (occurrence: US)
  Receive Date: 20170103
  Receipt Date: 20170120
  Transmission Date: 20170428
  Serious: Yes (Death, Hospitalization)
  Sender: FDA-Public Use
  Company Number: US-TAIHO ONCOLOGY INC-EU-2016-03281

PATIENT
  Age: 83 Year
  Sex: Male

DRUGS (1)
  1. LONSURF [Suspect]
     Active Substance: TIPIRACIL HYDROCHLORIDE\TRIFLURIDINE
     Indication: COLON CANCER
     Dosage: CYCLE 2
     Route: 048
     Dates: start: 20161102, end: 2016

REACTIONS (4)
  - Renal failure [Unknown]
  - Disease progression [Fatal]
  - Hydronephrosis [Unknown]
  - Obstruction [Unknown]

NARRATIVE: CASE EVENT DATE: 2016
